FAERS Safety Report 4279246-1 (Version None)
Quarter: 2004Q1

REPORT INFORMATION
  Report Type: 
  Country: None (occurrence: None)
  Receive Date: 20040126
  Receipt Date: 20040126
  Transmission Date: 20041129
  Serious: Yes (Other)
  Sender: FDA-Public Use
  Company Number: None

PATIENT
  Age: 70 Year
  Sex: Male
  Weight: 141.5 kg

DRUGS (1)
  1. CLINDAMYCIN 300 MG DEXTROSE 5% [Suspect]

REACTIONS (1)
  - RASH [None]
